FAERS Safety Report 22340132 (Version 1)
Quarter: 2023Q2

REPORT INFORMATION
  Report Type: Report from Study
  Country: CO (occurrence: CO)
  Receive Date: 20230518
  Receipt Date: 20230518
  Transmission Date: 20230722
  Serious: Yes (Other)
  Sender: FDA-Public Use
  Company Number: CO-ABBVIE-4770759

PATIENT
  Age: 52 Year
  Sex: Female
  Weight: 55 kg

DRUGS (8)
  1. ZEMPLAR [Suspect]
     Active Substance: PARICALCITOL
     Indication: Chronic kidney disease
     Dosage: 1 MICROGRAM
     Route: 048
     Dates: end: 20230329
  2. ESOMEPRAZOLE [Concomitant]
     Active Substance: ESOMEPRAZOLE
     Indication: Gastritis
  3. NYSTATIN [Concomitant]
     Active Substance: NYSTATIN
     Indication: Product used for unknown indication
     Route: 002
     Dates: start: 20230420
  4. TACROLIMUS [Concomitant]
     Active Substance: TACROLIMUS
     Indication: Product used for unknown indication
     Route: 048
     Dates: start: 20230420
  5. TRIMETHOPRIM [Concomitant]
     Active Substance: TRIMETHOPRIM
     Indication: Product used for unknown indication
     Dosage: 1 TABLET
     Dates: start: 20230420
  6. MYCOPHENOLIC ACID [Concomitant]
     Active Substance: MYCOPHENOLIC ACID
     Indication: Product used for unknown indication
     Dates: start: 20230420
  7. PREDNISONE [Concomitant]
     Active Substance: PREDNISONE
     Indication: Product used for unknown indication
     Dates: start: 20230420
  8. LOSARTAN [Concomitant]
     Active Substance: LOSARTAN
     Indication: Hypertension

REACTIONS (12)
  - Chronic kidney disease [Recovering/Resolving]
  - Blood potassium abnormal [Recovering/Resolving]
  - Blood urea abnormal [Recovering/Resolving]
  - Blood creatinine abnormal [Recovering/Resolving]
  - Blood urea abnormal [Recovering/Resolving]
  - Blood phosphorus abnormal [Recovering/Resolving]
  - Urinary tract infection [Recovered/Resolved]
  - Inflammation [Recovering/Resolving]
  - Blood creatinine abnormal [Recovering/Resolving]
  - Abdominal discomfort [Recovered/Resolved]
  - Tremor [Recovering/Resolving]
  - Blood creatinine decreased [Recovering/Resolving]

NARRATIVE: CASE EVENT DATE: 20220801
